FAERS Safety Report 5871842-0 (Version None)
Quarter: 2008Q3

REPORT INFORMATION
  Report Type: 
  Country: None (occurrence: None)
  Receive Date: 20080902
  Receipt Date: 20080820
  Transmission Date: 20090109
  Serious: Yes (Life-Threatening, Hospitalization, Other)
  Sender: FDA-Public Use
  Company Number: 2008AP002173

PATIENT
  Age: 49 Year
  Sex: Female

DRUGS (4)
  1. SERTRALINE HYDROCHLORIDE [Suspect]
  2. RISPERDAL [Suspect]
  3. CO-PROXAMOL (APOREX) [Suspect]
  4. ACETAMINOPHEN [Suspect]

REACTIONS (6)
  - BRAIN OEDEMA [None]
  - HEPATIC ENCEPHALOPATHY [None]
  - MULTIPLE DRUG OVERDOSE INTENTIONAL [None]
  - OLIGURIA [None]
  - PULMONARY OEDEMA [None]
  - SOMNOLENCE [None]
